FAERS Safety Report 6210679-X (Version None)
Quarter: 2009Q2

REPORT INFORMATION
  Report Type: 
  Country: None (occurrence: None)
  Receive Date: 20090601
  Receipt Date: 20090520
  Transmission Date: 20091009
  Serious: Yes (Hospitalization)
  Sender: FDA-Public Use
  Company Number: US-AVENTIS-200912825EU

PATIENT
  Age: 83 Year
  Sex: Male

DRUGS (2)
  1. RILUTEK [Suspect]
     Dates: start: 20080101
  2. TOPROL-XL [Suspect]

REACTIONS (3)
  - BALANCE DISORDER [None]
  - FALL [None]
  - SOMNOLENCE [None]
